FAERS Safety Report 15247552 (Version 2)
Quarter: 2018Q3

REPORT INFORMATION
  Report Type: Report from Study
  Country: CN (occurrence: CN)
  Receive Date: 20180807
  Receipt Date: 20180817
  Transmission Date: 20181010
  Serious: Yes (Hospitalization)
  Sender: FDA-Public Use
  Company Number: CN-AMGEN-CHNCT2018107464

PATIENT
  Age: 73 Year
  Sex: Male

DRUGS (11)
  1. HERBAL [Concomitant]
     Indication: CORONARY ARTERY DISEASE
     Dosage: 3 DF, TID
     Route: 048
  2. RECOMBINANT HUMAN ERYTHROPOIETIN [Concomitant]
     Active Substance: ERYTHROPOIETIN
     Indication: NEPHROGENIC ANAEMIA
     Dosage: 10000 IU, 3 TIMES/WK
     Route: 042
  3. CINACALCET HCL [Suspect]
     Active Substance: CINACALCET HYDROCHLORIDE
     Indication: HYPERPARATHYROIDISM SECONDARY
     Dosage: 25 MG, QD
     Route: 048
     Dates: start: 20180202
  4. CALCITRIOL. [Concomitant]
     Active Substance: CALCITRIOL
     Indication: HYPERPARATHYROIDISM
     Dosage: 2 MUG, 3 TIMES/WK
     Route: 048
  5. CINACALCET HCL [Suspect]
     Active Substance: CINACALCET HYDROCHLORIDE
     Dosage: 50 MG, QD
     Route: 048
  6. CLOPIDOGREL HYDROGEN SULFATE [Concomitant]
     Active Substance: CLOPIDOGREL BISULFATE
     Indication: CORONARY ARTERY DISEASE
     Dosage: 75 MG, QD
     Route: 048
  7. PLAVIX [Concomitant]
     Active Substance: CLOPIDOGREL BISULFATE
     Indication: CORONARY ARTERY DISEASE
     Dosage: 75 MG, QD
     Route: 048
  8. CALCIUM CARBONATE. [Concomitant]
     Active Substance: CALCIUM CARBONATE
     Indication: HYPERPARATHYROIDISM
     Dosage: 2250 MG, 3 TIMES/WK
     Route: 048
  9. CELECOXIB. [Concomitant]
     Active Substance: CELECOXIB
     Indication: CHRONIC KIDNEY DISEASE-MINERAL AND BONE DISORDER
     Dosage: 1 DF, BID
     Route: 048
  10. LEVOCARNITINE. [Concomitant]
     Active Substance: LEVOCARNITINE
     Indication: CORONARY ARTERY DISEASE
     Dosage: 1 G, 3 TIMES/WK
     Route: 058
  11. AMLODIPINE AND VALSARTAN [Concomitant]
     Active Substance: AMLODIPINE\VALSARTAN
     Indication: RENAL HYPERTENSION
     Dosage: 85 MG, BID
     Route: 048

REACTIONS (1)
  - Arteriovenous fistula site complication [Recovered/Resolved]

NARRATIVE: CASE EVENT DATE: 20180730
